FAERS Safety Report 19692351 (Version 2)
Quarter: 2021Q4

REPORT INFORMATION
  Report Type: Report from Study
  Country: GB (occurrence: GB)
  Receive Date: 20210812
  Receipt Date: 20211124
  Transmission Date: 20220304
  Serious: Yes (Other)
  Sender: FDA-Public Use
  Company Number: GB-SAARTEMIS-SAC202006110193

PATIENT
  Age: 72 Year
  Sex: Female

DRUGS (17)
  1. DUPILUMAB [Suspect]
     Active Substance: DUPILUMAB
     Indication: Dermatitis atopic
     Dosage: 200 MG
     Route: 058
     Dates: start: 202005
  2. DUPILUMAB [Suspect]
     Active Substance: DUPILUMAB
     Dosage: UNK UNK, 1X
     Route: 058
     Dates: start: 20200526, end: 20200526
  3. DUPILUMAB [Suspect]
     Active Substance: DUPILUMAB
     Dosage: 300 MG, QOW
     Route: 058
     Dates: start: 2020
  4. DUPILUMAB [Suspect]
     Active Substance: DUPILUMAB
     Dosage: UNK
     Route: 058
     Dates: start: 20200728
  5. DUPILUMAB [Suspect]
     Active Substance: DUPILUMAB
     Dosage: UNK
     Dates: start: 2020
  6. DUPILUMAB [Suspect]
     Active Substance: DUPILUMAB
     Dosage: 300 MG, QOW
     Route: 058
     Dates: start: 20210715
  7. DUPILUMAB [Suspect]
     Active Substance: DUPILUMAB
     Dosage: 300 MG, QOW
     Route: 058
     Dates: start: 20210826
  8. CALCIUM\CHOLECALCIFEROL [Concomitant]
     Active Substance: CALCIUM\CHOLECALCIFEROL
     Indication: Osteoporosis
     Dosage: 500 MG, QD
     Route: 048
  9. CALCIUM\CHOLECALCIFEROL [Concomitant]
     Active Substance: CALCIUM\CHOLECALCIFEROL
     Dosage: 500 MG, QD
     Route: 048
  10. SERETIDE [Concomitant]
     Active Substance: FLUTICASONE PROPIONATE\SALMETEROL XINAFOATE
     Indication: Asthma
     Dosage: 50/500 MCG
  11. SERETIDE [Concomitant]
     Active Substance: FLUTICASONE PROPIONATE\SALMETEROL XINAFOATE
  12. OMEPRAZOLE SODIUM [Concomitant]
     Active Substance: OMEPRAZOLE SODIUM
     Indication: Gastrooesophageal reflux disease
     Dosage: 20 MG, PRN
     Route: 048
     Dates: start: 2018
  13. LOSARTAN POTASSIUM [Concomitant]
     Active Substance: LOSARTAN POTASSIUM
     Indication: Hypertension
     Dosage: 50 MG, NOCTE
     Route: 048
     Dates: start: 2019
  14. FEXOFENADINE [Concomitant]
     Active Substance: FEXOFENADINE HYDROCHLORIDE
     Indication: Seasonal allergy
     Dosage: 180 MG, QD
     Route: 048
     Dates: start: 20200420
  15. AMLODIPINE [Concomitant]
     Active Substance: AMLODIPINE BESYLATE
     Indication: Hypertension
     Dosage: 10 MG, QD
     Route: 048
     Dates: start: 2019
  16. VENTOLIN [Concomitant]
     Active Substance: ALBUTEROL SULFATE
     Indication: Asthma
     Dosage: 100 UG, BID
  17. LEVOTHYROXINE [Concomitant]
     Active Substance: LEVOTHYROXINE
     Indication: Hypothyroidism
     Dosage: 75 UG, QD
     Route: 048

REACTIONS (37)
  - Lower respiratory tract infection [Recovering/Resolving]
  - Haemoptysis [Not Recovered/Not Resolved]
  - Headache [Unknown]
  - Alopecia [Unknown]
  - Weight decreased [Unknown]
  - Vision blurred [Recovered/Resolved]
  - Visual impairment [Recovered/Resolved]
  - Tenderness [Unknown]
  - Skin exfoliation [Unknown]
  - Vertigo [Unknown]
  - Balance disorder [Unknown]
  - Mobility decreased [Unknown]
  - Gait disturbance [Unknown]
  - Myalgia [Unknown]
  - Discomfort [Unknown]
  - Erythema [Unknown]
  - Dry skin [Unknown]
  - Rash macular [Unknown]
  - Arthralgia [Unknown]
  - Product use issue [Unknown]
  - Influenza like illness [Unknown]
  - Pruritus [Unknown]
  - Dizziness [Unknown]
  - Pain [Unknown]
  - Eye pain [Unknown]
  - Ocular hyperaemia [Unknown]
  - Condition aggravated [Unknown]
  - Pain in extremity [Unknown]
  - Eye swelling [Unknown]
  - Condition aggravated [Unknown]
  - Feeling abnormal [Unknown]
  - Eye pruritus [Unknown]
  - Dry eye [Unknown]
  - Adverse drug reaction [Unknown]
  - Rebound psoriasis [Unknown]
  - Stress [Unknown]
  - Emotional distress [Unknown]

NARRATIVE: CASE EVENT DATE: 20200101
